FAERS Safety Report 4489628-0 (Version None)
Quarter: 2004Q4

REPORT INFORMATION
  Report Type: 
  Country: None (occurrence: None)
  Receive Date: 20041026
  Receipt Date: 20041011
  Transmission Date: 20050328
  Serious: Yes (Life-Threatening)
  Sender: FDA-Public Use
  Company Number: 2004-BP-09537AU

PATIENT
  Age: 58 Year
  Sex: Female

DRUGS (3)
  1. CATAPRES [Suspect]
     Indication: MENOPAUSAL SYMPTOMS
  2. ATENOLOL [Suspect]
     Dosage: 50 MG PO (NR, 50MG DAILY)
     Route: 048
     Dates: start: 20020927, end: 20020930
  3. SIMVASTATIN [Suspect]
     Dosage: (NR, 10MG DAILY) PO
     Route: 048
     Dates: start: 20020927, end: 20020930

REACTIONS (1)
  - INAPPROPRIATE ANTIDIURETIC HORMONE SECRETION [None]
